FAERS Safety Report 11475332 (Version 2)
Quarter: 2015Q4

REPORT INFORMATION
  Report Type: Spontaneous
  Country: US (occurrence: US)
  Receive Date: 20150909
  Receipt Date: 20151204
  Transmission Date: 20160304
  Serious: Yes (Death, Other)
  Sender: FDA-Public Use
  Company Number: US-PFIZER INC-2012178743

PATIENT
  Age: 65 Year
  Sex: Female

DRUGS (9)
  1. METOPROLOL SUCCINATE. [Suspect]
     Active Substance: METOPROLOL SUCCINATE
     Dosage: 100 MG, 1X/DAY
  2. PREDNISONE. [Concomitant]
     Active Substance: PREDNISONE
     Dosage: 5 MG, 1X/DAY
  3. NOVOLOG [Concomitant]
     Active Substance: INSULIN ASPART
     Dosage: 3 SHOTS A DAY AMOUNT AS NEEDED
  4. LIPITOR [Suspect]
     Active Substance: ATORVASTATIN CALCIUM
     Dosage: 40 MG, 1X/DAY
  5. ALLOPURINOL. [Concomitant]
     Active Substance: ALLOPURINOL
     Dosage: 300 MG, 1X/DAY
  6. DIPHENOXYLATE ATROPINE [Concomitant]
     Dosage: UNK (10 DAY)
  7. ZEMPLAR [Suspect]
     Active Substance: PARICALCITOL
     Dosage: 2 UG, 1X/DAY
  8. FUROSEMIDE. [Suspect]
     Active Substance: FUROSEMIDE
     Dosage: 80 MG, 2X/DAY
  9. LANTUS [Concomitant]
     Active Substance: INSULIN GLARGINE
     Dosage: 24 HOURS 1 SHOT AT BED TIME

REACTIONS (1)
  - Myocardial infarction [Fatal]

NARRATIVE: CASE EVENT DATE: 2012
